FAERS Safety Report 26054680 (Version 1)
Quarter: 2025Q4

REPORT INFORMATION
  Report Type: Spontaneous
  Country: GB (occurrence: GB)
  Receive Date: 20251117
  Receipt Date: 20251117
  Transmission Date: 20260118
  Serious: Yes (Hospitalization, Other)
  Sender: BOEHRINGER INGELHEIM
  Company Number: None

PATIENT
  Age: 39 Year
  Sex: Female

DRUGS (1)
  1. JARDIANCE [Suspect]
     Active Substance: EMPAGLIFLOZIN
     Indication: Type 2 diabetes mellitus
     Dosage: 10MG

REACTIONS (11)
  - Oral mucosal blistering [Unknown]
  - Swelling face [Unknown]
  - Lip swelling [Unknown]
  - Hypertension [Unknown]
  - Diarrhoea [Not Recovered/Not Resolved]
  - Rash [Not Recovered/Not Resolved]
  - Rhinorrhoea [Not Recovered/Not Resolved]
  - Urticaria [Unknown]
  - Headache [Unknown]
  - Chapped lips [Unknown]
  - Fatigue [Unknown]

NARRATIVE: CASE EVENT DATE: 20251105
